FAERS Safety Report 5586084-6 (Version None)
Quarter: 2008Q1

REPORT INFORMATION
  Report Type: 
  Country: None (occurrence: None)
  Receive Date: 20080104
  Receipt Date: 20071227
  Transmission Date: 20080703
  Serious: Yes (Death, Hospitalization)
  Sender: FDA-Public Use
  Company Number: POMP-1000015

PATIENT
  Age: 19 Month
  Sex: Female

DRUGS (1)
  1. MYOZYME [Suspect]
     Indication: GLYCOGEN STORAGE DISEASE TYPE II
     Dosage: 20 MG/KG, Q2W, INTRAVENOUS
     Route: 042
     Dates: start: 20061027, end: 20071214

REACTIONS (9)
  - BRADYCARDIA [None]
  - CARDIAC ARREST [None]
  - CATHETER RELATED INFECTION [None]
  - HYPOXIC ENCEPHALOPATHY [None]
  - INFLUENZA [None]
  - INFUSION RELATED REACTION [None]
  - RESPIRATORY DISTRESS [None]
  - RESPIRATORY FAILURE [None]
  - SEPSIS [None]
